FAERS Safety Report 4644699-3 (Version None)
Quarter: 2005Q2

REPORT INFORMATION
  Report Type: 
  Country: None (occurrence: None)
  Receive Date: 20050422
  Receipt Date: 20050407
  Transmission Date: 20051028
  Serious: Yes (Other)
  Sender: FDA-Public Use
  Company Number: S05-NLD-01478-01

PATIENT
  Age: 37 Year
  Sex: Male

DRUGS (2)
  1. CITALOPRAM HYDROBROMIDE [Suspect]
     Indication: ANXIETY
     Dosage: 20 MG QD PO
     Route: 048
     Dates: start: 20050104, end: 20050114
  2. CITALOPRAM HYDROBROMIDE [Suspect]
     Indication: DEPRESSION
     Dosage: 20 MG QD PO
     Route: 048
     Dates: start: 20050104, end: 20050114

REACTIONS (7)
  - ANAL HAEMORRHAGE [None]
  - EPISTAXIS [None]
  - HAEMORRHAGE [None]
  - HEADACHE [None]
  - MOUTH HAEMORRHAGE [None]
  - RASH [None]
  - TREMOR [None]
